FAERS Safety Report 18304896 (Version 1)
Quarter: 2020Q3

REPORT INFORMATION
  Report Type: Spontaneous
  Country: US (occurrence: US)
  Receive Date: 20200915
  Receipt Date: 20200915
  Transmission Date: 20201103
  Serious: No
  Sender: FDA-Public Use
  Company Number: None

PATIENT
  Age: 8 Decade
  Sex: Male

DRUGS (1)
  1. REMDESIVIR. [Suspect]
     Active Substance: REMDESIVIR
     Indication: COVID-19
     Dates: start: 2020

REACTIONS (5)
  - Superinfection [None]
  - Pleural effusion [None]
  - Multiple organ dysfunction syndrome [None]
  - Off label use [None]
  - Sepsis [None]
